FAERS Safety Report 14898984 (Version 2)
Quarter: 2018Q4

REPORT INFORMATION
  Report Type: Spontaneous
  Country: FR (occurrence: FR)
  Receive Date: 20180515
  Receipt Date: 20181024
  Transmission Date: 20190204
  Serious: Yes (Hospitalization, Other)
  Sender: FDA-Public Use
  Company Number: FR-MERCK KGAA-2047840

PATIENT
  Age: 40 Year
  Sex: Female
  Weight: 67 kg

DRUGS (2)
  1. LEVOTHYROX 100 NF [Suspect]
     Active Substance: LEVOTHYROXINE SODIUM
     Route: 048
     Dates: start: 201707, end: 20171121
  2. EUTHYROX [Suspect]
     Active Substance: LEVOTHYROXINE SODIUM
     Indication: AUTOIMMUNE THYROIDITIS
     Route: 048
     Dates: start: 20170614

REACTIONS (55)
  - Neck pain [Recovered/Resolved]
  - Pain in extremity [Recovered/Resolved]
  - Joint lock [Recovered/Resolved]
  - Gait disturbance [Recovered/Resolved]
  - Weight increased [Recovered/Resolved]
  - Blood pressure increased [Recovered/Resolved]
  - Middle insomnia [Recovered/Resolved]
  - Arrhythmia [Recovered/Resolved]
  - Impaired work ability [Recovered/Resolved]
  - Amnesia [Recovered/Resolved]
  - Mental impairment [Recovered/Resolved]
  - Feeling cold [Recovered/Resolved]
  - Mood swings [Recovered/Resolved]
  - Stress [Recovered/Resolved]
  - Photosensitivity reaction [Recovered/Resolved]
  - Parosmia [Recovered/Resolved]
  - Fall [Recovered/Resolved]
  - Decreased appetite [Recovered/Resolved]
  - Maternal exposure during pregnancy [Recovered/Resolved]
  - Constipation [Recovered/Resolved]
  - Cardiovascular disorder [Recovered/Resolved]
  - Asthenia [Recovered/Resolved]
  - Impaired driving ability [Recovered/Resolved]
  - Divorced [Recovered/Resolved]
  - Malaise [Recovered/Resolved]
  - Hyperacusis [Recovered/Resolved]
  - Social avoidant behaviour [Recovered/Resolved]
  - Weight decreased [Recovered/Resolved]
  - Blood thyroid stimulating hormone decreased [Recovered/Resolved]
  - Gastrooesophageal reflux disease [Recovered/Resolved]
  - Fatigue [Recovered/Resolved]
  - Hypersomnia [Recovered/Resolved]
  - Haemoglobin decreased [Recovered/Resolved]
  - Temperature intolerance [Recovered/Resolved]
  - Mean cell haemoglobin concentration increased [Recovered/Resolved]
  - Nervousness [Recovered/Resolved]
  - Muscle spasms [Recovered/Resolved]
  - Musculoskeletal stiffness [Recovered/Resolved]
  - Impatience [Recovered/Resolved]
  - Back pain [Recovered/Resolved]
  - Myalgia [Recovered/Resolved]
  - Irritability [Recovered/Resolved]
  - Feeling hot [Recovered/Resolved]
  - Alopecia [Recovered/Resolved]
  - Vertigo [Recovered/Resolved]
  - Thirst [Recovered/Resolved]
  - Arthralgia [Recovered/Resolved]
  - Depression [Recovered/Resolved]
  - Visual impairment [Recovered/Resolved]
  - Nausea [Recovered/Resolved]
  - Hypoaesthesia [Recovered/Resolved]
  - Anxiety [Recovered/Resolved]
  - Blood zinc increased [Recovered/Resolved]
  - Reverse tri-iodothyronine decreased [Recovered/Resolved]
  - Headache [Recovered/Resolved]

NARRATIVE: CASE EVENT DATE: 2017
